FAERS Safety Report 19834699 (Version 7)
Quarter: 2021Q4

REPORT INFORMATION
  Report Type: Spontaneous
  Country: US (occurrence: US)
  Receive Date: 20210915
  Receipt Date: 20211201
  Transmission Date: 20220303
  Serious: Yes (Other)
  Sender: FDA-Public Use
  Company Number: US-UNITED THERAPEUTICS-UNT-2021-015832

PATIENT
  Sex: Female
  Weight: 103.4 kg

DRUGS (9)
  1. REMODULIN [Suspect]
     Active Substance: TREPROSTINIL
     Indication: Pulmonary arterial hypertension
     Dosage: UNK, CONTINUING
     Route: 058
     Dates: start: 20210810
  2. REMODULIN [Suspect]
     Active Substance: TREPROSTINIL
     Dosage: 0.022 ?G/KG, CONTINUING
     Route: 058
     Dates: start: 202108
  3. REMODULIN [Suspect]
     Active Substance: TREPROSTINIL
     Dosage: 0.024 ?G/KG, CONTINUING
     Route: 058
     Dates: start: 202108
  4. REMODULIN [Suspect]
     Active Substance: TREPROSTINIL
     Dosage: 0.030 ?G/KG, CONTINUING
     Route: 058
     Dates: start: 2021
  5. REMODULIN [Suspect]
     Active Substance: TREPROSTINIL
     Dosage: 0.036 ?G/KG, CONTINUING
     Route: 058
     Dates: start: 2021
  6. REMODULIN [Suspect]
     Active Substance: TREPROSTINIL
     Dosage: 0.043 ?G/KG, CONTINUING
     Route: 058
     Dates: start: 2021
  7. OPSUMIT [Suspect]
     Active Substance: MACITENTAN
     Indication: Pulmonary arterial hypertension
     Dosage: 10 MG, QD
     Route: 048
     Dates: start: 202108
  8. TADALAFIL [Concomitant]
     Active Substance: TADALAFIL
     Indication: Product used for unknown indication
     Dosage: UNK
     Route: 065
  9. MIDODRINE HYDROCHLORIDE [Concomitant]
     Active Substance: MIDODRINE HYDROCHLORIDE
     Indication: Hypotension
     Dosage: UNK
     Route: 065

REACTIONS (19)
  - Sarcoidosis [Unknown]
  - Infusion site pain [Unknown]
  - Migraine [Recovering/Resolving]
  - Diarrhoea [Recovering/Resolving]
  - Road traffic accident [Unknown]
  - Limb injury [Unknown]
  - Fluid retention [Unknown]
  - Pain in jaw [Recovering/Resolving]
  - Sleep disorder [Recovering/Resolving]
  - Vomiting [Recovering/Resolving]
  - Arthralgia [Unknown]
  - Infusion site swelling [Unknown]
  - Pain [Unknown]
  - Infusion site nodule [Unknown]
  - Infusion site reaction [Unknown]
  - Chest pain [Unknown]
  - Seasonal allergy [Unknown]
  - Infusion site injury [Unknown]
  - Device issue [Unknown]

NARRATIVE: CASE EVENT DATE: 20210101
